FAERS Safety Report 19139103 (Version 1)
Quarter: 2021Q2

REPORT INFORMATION
  Report Type: Spontaneous
  Country: US (occurrence: US)
  Receive Date: 20210414
  Receipt Date: 20210414
  Transmission Date: 20210717
  Serious: Yes (Life-Threatening, Hospitalization, Disabling, Other)
  Sender: FDA-Public Use
  Company Number: None

PATIENT
  Age: 61 Year
  Sex: Female
  Weight: 67.5 kg

DRUGS (5)
  1. BLOOD THINNERS [Concomitant]
     Active Substance: UNSPECIFIED INGREDIENT
  2. LUNESTA [Concomitant]
     Active Substance: ESZOPICLONE
  3. REQUIP [Suspect]
     Active Substance: ROPINIROLE HYDROCHLORIDE
     Indication: RESTLESS LEGS SYNDROME
     Dosage: ?          OTHER ROUTE:RESTLESS LEG?
     Dates: start: 20200820, end: 20201215
  4. LYRICA [Concomitant]
     Active Substance: PREGABALIN
  5. CHOLESTEROL [Concomitant]
     Active Substance: CHOLESTEROL

REACTIONS (1)
  - Weight decreased [None]

NARRATIVE: CASE EVENT DATE: 20200820
